FAERS Safety Report 18757942 (Version 3)
Quarter: 2021Q1

REPORT INFORMATION
  Report Type: Report from Study
  Country: IN (occurrence: IN)
  Receive Date: 20210119
  Receipt Date: 20210324
  Transmission Date: 20210419
  Serious: Yes (Life-Threatening, Hospitalization, Other)
  Sender: FDA-Public Use
  Company Number: NVSC2020IN344980

PATIENT
  Age: 8 Month
  Sex: Female
  Weight: 6.3 kg

DRUGS (8)
  1. ZOLGENSMA [Suspect]
     Active Substance: ONASEMNOGENE ABEPARVOVEC-XIOI
     Dosage: 5.5 ML
     Route: 042
  2. ZOLGENSMA [Suspect]
     Active Substance: ONASEMNOGENE ABEPARVOVEC-XIOI
     Dosage: 8.3 ML
     Route: 042
  3. LANZOL [Concomitant]
     Indication: GASTRITIS PROPHYLAXIS
     Dosage: 1 MG/KG, QD
     Route: 065
     Dates: start: 20201202
  4. HYDROCORTISONE. [Concomitant]
     Active Substance: HYDROCORTISONE
     Indication: PRODUCT USED FOR UNKNOWN INDICATION
     Dosage: 100 MG/M2
     Route: 065
     Dates: start: 20201227
  5. ZOLGENSMA [Suspect]
     Active Substance: ONASEMNOGENE ABEPARVOVEC-XIOI
     Indication: SPINAL MUSCULAR ATROPHY
     Dosage: 33 ML, ONCE/SINGLE (1.1X 10E14 VECTOR GENOMES/KG B.W)
     Route: 042
     Dates: start: 20201224
  6. PREDNISOLONE. [Concomitant]
     Active Substance: PREDNISOLONE
     Indication: PROPHYLAXIS
     Dosage: 1 MG/KG, QD
     Route: 065
     Dates: start: 20201223, end: 20210107
  7. PREDNISOLONE. [Concomitant]
     Active Substance: PREDNISOLONE
     Dosage: 0.5 MG/KG
     Route: 048
     Dates: end: 20210120
  8. LANZOL [Concomitant]
     Dosage: 1 MG/KG, QD
     Route: 065
     Dates: start: 20201223, end: 20210110

REACTIONS (19)
  - Pyrexia [Unknown]
  - Transaminases increased [Recovering/Resolving]
  - Bulbar palsy [Unknown]
  - Lower respiratory tract infection [Recovered/Resolved]
  - Urinary tract infection [Recovered/Resolved]
  - Tachycardia [Recovered/Resolved]
  - Respiratory distress [Unknown]
  - Respiratory distress [Recovered/Resolved]
  - Lung infiltration [Unknown]
  - Lower respiratory tract infection [Not Recovered/Not Resolved]
  - Aspartate aminotransferase increased [Unknown]
  - Alanine aminotransferase increased [Unknown]
  - Myocarditis [Recovered/Resolved]
  - Pneumonia aspiration [Unknown]
  - Respiratory disorder [Unknown]
  - Apnoea [Unknown]
  - Klebsiella infection [Recovered/Resolved]
  - Respiratory muscle weakness [Unknown]
  - Pseudomonas infection [Recovered/Resolved]

NARRATIVE: CASE EVENT DATE: 20201227
